FAERS Safety Report 7704260-0 (Version None)
Quarter: 2011Q3

REPORT INFORMATION
  Report Type: 
  Country: None (occurrence: None)
  Receive Date: 20110823
  Receipt Date: 20110809
  Transmission Date: 20111222
  Serious: No
  Sender: FDA-Public Use
  Company Number: US-B.I. PHARMACEUTICALS,INC./RIDGEFIELD-2010-BP-14210BP

PATIENT
  Sex: Female
  Weight: 59.87 kg

DRUGS (8)
  1. PROCARDIA [Concomitant]
     Indication: HYPERTENSION
     Dosage: 60 MG
     Route: 048
     Dates: start: 20100101
  2. SYNTHROID [Concomitant]
     Indication: HYPOTHYROIDISM
     Dosage: 50 MCG
     Dates: start: 20110708
  3. PRADAXA [Suspect]
     Indication: ATRIAL FIBRILLATION
     Dosage: 300 MG
     Route: 048
     Dates: start: 20101119
  4. ASPIRIN [Concomitant]
     Dosage: 81 MG
  5. METOPROLOL [Concomitant]
     Indication: HYPERTENSION
     Dosage: 150 MG
     Route: 048
     Dates: start: 20100101
  6. CLONIDINE [Concomitant]
     Indication: HYPERTENSION
     Route: 048
     Dates: start: 20100101
  7. ATACAND [Concomitant]
     Indication: ATRIAL FIBRILLATION
     Dosage: 32 MG
     Route: 048
     Dates: start: 20100101
  8. SIMVASTATIN [Concomitant]
     Indication: BLOOD CHOLESTEROL INCREASED
     Dosage: 40 MG
     Route: 048
     Dates: start: 20100101

REACTIONS (4)
  - MUSCULAR WEAKNESS [None]
  - OROPHARYNGEAL PAIN [None]
  - DYSPNOEA [None]
  - HYPOAESTHESIA [None]
